FAERS Safety Report 6300171-6 (Version None)
Quarter: 2009Q3

REPORT INFORMATION
  Report Type: 
  Country: None (occurrence: None)
  Receive Date: 20090806
  Receipt Date: 20090730
  Transmission Date: 20100115
  Serious: Yes (Death, Hospitalization)
  Sender: FDA-Public Use
  Company Number: US-GILEAD-2009-0022841

PATIENT
  Sex: Male
  Weight: 95.34 kg

DRUGS (14)
  1. LETAIRIS [Suspect]
     Indication: PULMONARY ARTERIAL HYPERTENSION
     Route: 048
     Dates: start: 20081021
  2. REVATIO [Concomitant]
  3. COUMADIN [Concomitant]
  4. LASIX [Concomitant]
  5. LANOXIN [Concomitant]
  6. ALDACTONE [Concomitant]
  7. ZOCOR [Concomitant]
  8. POTASSIUM CHLORIDE [Concomitant]
  9. DARVOCET-N 50 [Concomitant]
  10. NAMENDA [Concomitant]
  11. BACTRIM DS [Concomitant]
  12. LYRICA [Concomitant]
  13. GLUCOPHAGE [Concomitant]
  14. CALCIUM [Concomitant]

REACTIONS (4)
  - COMA [None]
  - HYPOTENSION [None]
  - HYPOXIA [None]
  - PULMONARY FIBROSIS [None]
